FAERS Safety Report 25743553 (Version 1)
Quarter: 2025Q3

REPORT INFORMATION
  Report Type: Spontaneous
  Country: US (occurrence: US)
  Receive Date: 20250831
  Receipt Date: 20250831
  Transmission Date: 20251020
  Serious: Yes (Hospitalization, Other)
  Sender: CIPLA
  Company Number: US-CIPLA LTD.-2025US10862

PATIENT

DRUGS (1)
  1. IRINOTECAN [Interacting]
     Active Substance: IRINOTECAN
     Indication: Pancreatic carcinoma
     Route: 065

REACTIONS (2)
  - Cytopenia [Unknown]
  - Drug-genetic interaction [Unknown]
